FAERS Safety Report 7634215-6 (Version None)
Quarter: 2011Q3

REPORT INFORMATION
  Report Type: 
  Country: None (occurrence: None)
  Receive Date: 20110725
  Receipt Date: 20110425
  Transmission Date: 20111222
  Serious: No
  Sender: FDA-Public Use
  Company Number: US-MYLANLABS-2011S1007319

PATIENT
  Sex: Female

DRUGS (1)
  1. CLONIDINE [Suspect]
     Dosage: QW
     Route: 062
     Dates: start: 20110401, end: 20110401

REACTIONS (1)
  - DRUG INEFFECTIVE [None]
